FAERS Safety Report 11124712 (Version 1)
Quarter: 2015Q2

REPORT INFORMATION
  Report Type: Spontaneous
  Country: US (occurrence: None)
  Receive Date: 20150519
  Receipt Date: 20150519
  Transmission Date: 20150821
  Serious: Yes (Other)
  Sender: FDA-Public Use
  Company Number: None

PATIENT
  Age: 57 Year
  Sex: Female

DRUGS (3)
  1. VOLTAREN [Concomitant]
     Active Substance: DICLOFENAC SODIUM
  2. LEVOTHYROXINE [Concomitant]
     Active Substance: LEVOTHYROXINE
  3. CELECOXIB 200MG TEVA [Suspect]
     Active Substance: CELECOXIB
     Dosage: 1 CAPSULE QD ORAL?DURATION: A COUPLE OF WEEKS (ESTIMATED)
     Route: 048

REACTIONS (2)
  - Renal disorder [None]
  - Product substitution issue [None]

NARRATIVE: CASE EVENT DATE: 20150515
